FAERS Safety Report 6203511-1 (Version None)
Quarter: 2009Q2

REPORT INFORMATION
  Report Type: 
  Country: None (occurrence: None)
  Receive Date: 20090521
  Receipt Date: 20090506
  Transmission Date: 20091009
  Serious: Yes (Other)
  Sender: FDA-Public Use
  Company Number: 233877K09USA

PATIENT
  Age: 23 Year
  Sex: Female

DRUGS (1)
  1. REBIF [Suspect]
     Indication: MULTIPLE SCLEROSIS
     Dosage: 8.8 MCG, ONCE, SUBCUTANEOUS
     Route: 058
     Dates: start: 20090407, end: 20090407

REACTIONS (3)
  - CARDIAC FLUTTER [None]
  - INFLUENZA LIKE ILLNESS [None]
  - VENTRICULAR EXTRASYSTOLES [None]
